FAERS Safety Report 18538338 (Version 2)
Quarter: 2020Q4

REPORT INFORMATION
  Report Type: Spontaneous
  Country: JP (occurrence: JP)
  Receive Date: 20201123
  Receipt Date: 20201222
  Transmission Date: 20210114
  Serious: No
  Sender: FDA-Public Use
  Company Number: NVSJ2020JP012055

PATIENT
  Age: 84 Year
  Sex: Male

DRUGS (2)
  1. ULTIBRO INHALATION CAPSULES [Suspect]
     Active Substance: GLYCOPYRRONIUM\INDACATEROL
     Indication: CHRONIC OBSTRUCTIVE PULMONARY DISEASE
     Dosage: 1 DF, GLYCOPYRRONIUM BROMIDE 50UG AND INDACATEROL MALEATE 110UG, QD
     Route: 055
  2. ULTIBRO INHALATION CAPSULES [Suspect]
     Active Substance: GLYCOPYRRONIUM\INDACATEROL
     Dosage: 1 DF, GLYCOPYRRONIUM BROMIDE 50UG AND INDACATEROL MALEATE 110UG, QD
     Route: 055

REACTIONS (1)
  - Flatulence [Unknown]
